FAERS Safety Report 12404263 (Version 3)
Quarter: 2020Q3

REPORT INFORMATION
  Report Type: Spontaneous
  Country: FR (occurrence: FR)
  Receive Date: 20160525
  Receipt Date: 20200713
  Transmission Date: 20201102
  Serious: Yes (Congenital Anomaly, Other)
  Sender: FDA-Public Use
  Company Number: FR-ABBVIE-16P-056-1635271-00

PATIENT
  Sex: Male

DRUGS (3)
  1. DEPAKINE [Suspect]
     Active Substance: VALPROATE SODIUM
     Indication: MATERNAL EXPOSURE TIMING UNSPECIFIED
     Route: 064
     Dates: start: 19971205, end: 19980421
  2. DEPAKINE [Suspect]
     Active Substance: VALPROATE SODIUM
     Route: 064
     Dates: start: 19980618, end: 19980908
  3. DEPAKINE [Suspect]
     Active Substance: VALPROATE SODIUM
     Route: 064
     Dates: start: 19980421, end: 19980618

REACTIONS (27)
  - Learning disorder [Unknown]
  - Cardiac murmur [Unknown]
  - Disturbance in social behaviour [Unknown]
  - Eyelid ptosis [Unknown]
  - Ophthalmoplegia [Unknown]
  - Foetal exposure during pregnancy [Unknown]
  - Fine motor skill dysfunction [Unknown]
  - Agitation [Unknown]
  - Abnormal behaviour [Unknown]
  - Eating disorder [Unknown]
  - Intelligence test abnormal [Unknown]
  - Strabismus [Unknown]
  - Behaviour disorder [Unknown]
  - Oropharyngeal discomfort [Unknown]
  - Anxiety [Unknown]
  - Dysplasia [Unknown]
  - Pectus excavatum [Unknown]
  - Nasal disorder [Unknown]
  - Autism spectrum disorder [Not Recovered/Not Resolved]
  - Language disorder [Unknown]
  - Crying [Unknown]
  - Aphasia [Unknown]
  - Dysmorphism [Unknown]
  - Joint laxity [Unknown]
  - Dysgraphia [Unknown]
  - Fatigue [Unknown]
  - Ear disorder [Unknown]

NARRATIVE: CASE EVENT DATE: 199903
